FAERS Safety Report 14889540 (Version 2)
Quarter: 2018Q3

REPORT INFORMATION
  Report Type: Spontaneous
  Country: US (occurrence: US)
  Receive Date: 20180514
  Receipt Date: 20180706
  Transmission Date: 20181010
  Serious: No
  Sender: FDA-Public Use
  Company Number: US-ASTRAZENECA-2018SE50664

PATIENT
  Age: 86 Year
  Sex: Male

DRUGS (1)
  1. TUDORZA PRESSAIR [Suspect]
     Active Substance: ACLIDINIUM BROMIDE
     Dosage: 400 MCG 1 INHALATION TWICE A DAY
     Route: 055
     Dates: start: 20180303

REACTIONS (3)
  - Intentional device misuse [Unknown]
  - Drug dose omission [Unknown]
  - Device issue [Unknown]

NARRATIVE: CASE EVENT DATE: 2018
